FAERS Safety Report 12492544 (Version 1)
Quarter: 2016Q2

REPORT INFORMATION
  Report Type: Spontaneous
  Country: BY (occurrence: BY)
  Receive Date: 20160623
  Receipt Date: 20160623
  Transmission Date: 20160815
  Serious: Yes (Other)
  Sender: FDA-Public Use
  Company Number: BY-GLAXOSMITHKLINE-BY2016GSK087456

PATIENT
  Age: 42 Year
  Sex: Female

DRUGS (1)
  1. AVAMYS [Suspect]
     Active Substance: FLUTICASONE FUROATE
     Indication: SEASONAL ALLERGY
     Dosage: 110 UNK, BID
     Route: 045
     Dates: start: 2010, end: 2015

REACTIONS (1)
  - Glaucoma [Not Recovered/Not Resolved]
